FAERS Safety Report 7209672-X (Version None)
Quarter: 2011Q1

REPORT INFORMATION
  Report Type: 
  Country: None (occurrence: None)
  Receive Date: 20110104
  Receipt Date: 20101227
  Transmission Date: 20110831
  Serious: Yes (Hospitalization)
  Sender: FDA-Public Use
  Company Number: FR-B.I. PHARMACEUTICALS,INC./RIDGEFIELD-2010-FF-01067FF

PATIENT
  Sex: Male

DRUGS (5)
  1. TAMSULOSIN HCL [Suspect]
     Dosage: 0.4 MG
     Route: 048
  2. CALCIDOSE [Concomitant]
  3. DOLIPRANE [Suspect]
     Route: 048
  4. TERCIAN [Suspect]
     Dosage: 40 MG/ML DROPS
     Route: 048
  5. NORSET [Suspect]
     Dosage: 45 MG
     Route: 048

REACTIONS (3)
  - PULMONARY EMBOLISM [None]
  - OEDEMA PERIPHERAL [None]
  - HYPOPROTEINAEMIA [None]
